FAERS Safety Report 13983315 (Version 3)
Quarter: 2018Q2

REPORT INFORMATION
  Report Type: Spontaneous
  Country: US (occurrence: US)
  Receive Date: 20170918
  Receipt Date: 20180626
  Transmission Date: 20180711
  Serious: No
  Sender: FDA-Public Use
  Company Number: US-PFIZER INC-2017401396

PATIENT
  Age: 5 Year
  Sex: Female

DRUGS (1)
  1. ETHOSUXIMIDE. [Suspect]
     Active Substance: ETHOSUXIMIDE
     Dosage: 2.2 ML, TWICE DAILY
     Route: 048
     Dates: start: 20170903

REACTIONS (4)
  - Dysphagia [Unknown]
  - Product taste abnormal [Unknown]
  - Product use complaint [Unknown]
  - Dysgeusia [Unknown]

NARRATIVE: CASE EVENT DATE: 20170912
